FAERS Safety Report 26065363 (Version 1)
Quarter: 2025Q4

REPORT INFORMATION
  Report Type: Spontaneous
  Country: US (occurrence: US)
  Receive Date: 20251119
  Receipt Date: 20251119
  Transmission Date: 20260117
  Serious: Yes (Other)
  Sender: PFIZER
  Company Number: US-PFIZER INC-PV202500134442

PATIENT
  Age: 81 Year
  Sex: Female
  Weight: 50.703 kg

DRUGS (1)
  1. OXALIPLATIN [Suspect]
     Active Substance: OXALIPLATIN
     Dosage: 12 CYCLES
     Dates: start: 20230906, end: 202405

REACTIONS (1)
  - Neurotoxicity [Unknown]
